FAERS Safety Report 7392005-6 (Version None)
Quarter: 2011Q2

REPORT INFORMATION
  Report Type: 
  Country: None (occurrence: None)
  Receive Date: 20110404
  Receipt Date: 20110323
  Transmission Date: 20111010
  Serious: Yes (Hospitalization)
  Sender: FDA-Public Use
  Company Number: US-PFIZER INC-2011052135

PATIENT
  Sex: Male
  Weight: 84.354 kg

DRUGS (17)
  1. PF-04856884 [Suspect]
     Indication: RENAL CELL CARCINOMA
     Dosage: 1302 MG, WEEKLY
     Route: 042
     Dates: start: 20110207, end: 20110228
  2. ZANTAC [Concomitant]
     Indication: PEPTIC ULCER
     Dosage: 150 MG, AS NEEDED
     Route: 048
     Dates: start: 20080101
  3. ZESTRIL [Concomitant]
     Indication: HYPERLIPIDAEMIA
     Dosage: 40 MG, 1X/DAY
     Route: 048
  4. FLONASE [Concomitant]
     Indication: SEASONAL ALLERGY
     Dosage: 2 SPRAYS, AS NEEDED
     Route: 055
  5. NORVASC [Concomitant]
     Indication: HYPERTENSION
     Dosage: 10 MG, 2X/DAY
     Route: 048
     Dates: start: 20100301
  6. VICODIN [Concomitant]
     Indication: ABDOMINAL PAIN LOWER
     Dosage: 2 TABLETS, AS NEEDED
     Route: 048
     Dates: start: 20110210
  7. COREG [Concomitant]
     Indication: HYPERTENSION
     Dosage: 6.25 MG, 2X/DAY
     Route: 048
  8. ANZEMET [Concomitant]
     Indication: NAUSEA
     Dosage: 100 MG, 1X/DAY
     Route: 048
     Dates: start: 20110210
  9. XANAX [Concomitant]
     Dosage: 0.5 MG, AS NEEDED
     Route: 048
     Dates: start: 20110316
  10. SUNITINIB MALATE [Suspect]
     Indication: RENAL CELL CARCINOMA
     Dosage: 50 MG, 1X/DAY, 4/2 SCHEDULE
     Route: 048
     Dates: start: 20110207, end: 20110304
  11. ZOCOR [Concomitant]
     Indication: HYPERCHOLESTEROLAEMIA
     Dosage: 20 MG, 1X/DAY
     Route: 048
  12. DILAUDID [Concomitant]
     Indication: ABDOMINAL PAIN LOWER
     Dosage: 2 MG, AS NEEDED
     Route: 042
     Dates: start: 20110217
  13. NORMAL SALINE [Concomitant]
     Indication: DIARRHOEA
     Dosage: 1 LITER
     Route: 042
     Dates: start: 20110228, end: 20110228
  14. LOTREL [Concomitant]
     Indication: HYPERTENSION
     Dosage: 1 TABLET, 1X/DAY
     Route: 048
     Dates: start: 20080101
  15. LOPERAMIDE HYDROCHLORIDE [Concomitant]
     Indication: DIARRHOEA
     Dosage: 2 TABLETS
     Route: 048
     Dates: start: 20110228, end: 20110228
  16. PERI-COLACE [Concomitant]
     Indication: CONSTIPATION
     Dosage: 1-2 TABLETS AS NEEDED
     Dates: start: 20110217
  17. XANAX [Concomitant]
     Indication: ANXIETY
     Dosage: 1 MG, 3X/DAY
     Route: 048
     Dates: start: 20080101

REACTIONS (2)
  - COLITIS ISCHAEMIC [None]
  - GASTROINTESTINAL HAEMORRHAGE [None]
